FAERS Safety Report 14326675 (Version 5)
Quarter: 2019Q1

REPORT INFORMATION
  Report Type: Report from Study
  Country: None (occurrence: JP)
  Receive Date: 20171227
  Receipt Date: 20190201
  Transmission Date: 20190417
  Serious: Yes (Hospitalization)
  Sender: FDA-Public Use
  Company Number: JP-ABBVIE-17K-087-2198372-00

PATIENT
  Age: 74 Year
  Sex: Male
  Weight: 59 kg

DRUGS (8)
  1. DUODOPA [Suspect]
     Active Substance: CARBIDOPA\LEVODOPA
     Route: 050
     Dates: start: 20171216
  2. DUODOPA [Suspect]
     Active Substance: CARBIDOPA\LEVODOPA
     Dosage: MD 8 ML?CD 4 ML/HRS ? 14 HRS
     Route: 050
     Dates: start: 20171119, end: 20171121
  3. DUODOPA [Suspect]
     Active Substance: CARBIDOPA\LEVODOPA
     Dosage: MD 8 ML?CD 3 ML/HRS ? 14 HRS
     Route: 050
     Dates: start: 20171116, end: 20171116
  4. DUODOPA [Suspect]
     Active Substance: CARBIDOPA\LEVODOPA
     Indication: PARKINSON^S DISEASE
     Dosage: MD 11 ML?CD 2.5 ML/HRS ? 14 HRS
     Route: 050
     Dates: start: 20171115, end: 20171115
  5. PRAMIPEXOLE HYDROCHLORIDE HYDRATE [Concomitant]
     Active Substance: PRAMIPEXOLE DIHYDROCHLORIDE
     Indication: PRODUCT USED FOR UNKNOWN INDICATION
     Route: 048
  6. DUODOPA [Suspect]
     Active Substance: CARBIDOPA\LEVODOPA
     Dosage: MD 8 ML?CD 3.5 ML/HRS ? 14 HRS
     Route: 050
     Dates: start: 20171117, end: 20171118
  7. DUODOPA [Suspect]
     Active Substance: CARBIDOPA\LEVODOPA
     Dosage: MD 6 ML?CD 5 ML/HRS ? 5 HRS
     Route: 050
     Dates: start: 20171122, end: 20171122
  8. DUODOPA [Suspect]
     Active Substance: CARBIDOPA\LEVODOPA
     Dosage: MD 11 ML?CD 4 ML/HRS ? 14 HRS
     Route: 050
     Dates: start: 20171123, end: 20171215

REACTIONS (2)
  - Complication associated with device [Recovered/Resolved]
  - Device related infection [Recovered/Resolved]

NARRATIVE: CASE EVENT DATE: 201712
